FAERS Safety Report 8161943-9 (Version None)
Quarter: 2012Q1

REPORT INFORMATION
  Report Type: 
  Country: None (occurrence: None)
  Receive Date: 20120224
  Receipt Date: 20120215
  Transmission Date: 20120608
  Serious: Yes (Other)
  Sender: FDA-Public Use
  Company Number: US-MYLANLABS-2011S1012963

PATIENT
  Age: 32 Year
  Sex: Female
  Weight: 45.36 kg

DRUGS (1)
  1. AMNESTEEM [Suspect]
     Dates: start: 20110501, end: 20110501

REACTIONS (2)
  - NORMAL NEWBORN [None]
  - MATERNAL EXPOSURE DURING PREGNANCY [None]
